FAERS Safety Report 7214186-7 (Version None)
Quarter: 2011Q1

REPORT INFORMATION
  Report Type: 
  Country: None (occurrence: None)
  Receive Date: 20110107
  Receipt Date: 20110106
  Transmission Date: 20110831
  Serious: Yes (Hospitalization)
  Sender: FDA-Public Use
  Company Number: IT-ABBOTT-11P-083-0695475-00

PATIENT
  Sex: Female

DRUGS (1)
  1. ERITROCINA BASE TABLETS [Suspect]
     Indication: PHARYNGITIS
     Route: 048
     Dates: start: 20101213, end: 20101229

REACTIONS (2)
  - RASH [None]
  - PRURITUS [None]
